FAERS Safety Report 6381500-4 (Version None)
Quarter: 2009Q3

REPORT INFORMATION
  Report Type: 
  Country: None (occurrence: None)
  Receive Date: 20090924
  Receipt Date: 20090915
  Transmission Date: 20100115
  Serious: Yes (Other)
  Sender: FDA-Public Use
  Company Number: ADE# 09-122

PATIENT
  Sex: Female

DRUGS (2)
  1. TRAMADOL HCL [Suspect]
     Indication: HEADACHE
     Dosage: ONE TABLET, ONCE
     Dates: start: 20090810
  2. TRAMADOL HCL [Suspect]
     Indication: HEADACHE
     Dosage: ONE TABLET, ONCE
     Dates: start: 20090811

REACTIONS (2)
  - DIZZINESS [None]
  - FATIGUE [None]
